FAERS Safety Report 6904888-1 (Version None)
Quarter: 2010Q3

REPORT INFORMATION
  Report Type: 
  Country: None (occurrence: None)
  Receive Date: 20100804
  Receipt Date: 20090729
  Transmission Date: 20110219
  Serious: No
  Sender: FDA-Public Use
  Company Number: US-PFIZER INC-2009223985

PATIENT
  Age: 33 Year
  Sex: Male

DRUGS (3)
  1. LYRICA [Suspect]
     Indication: NEURALGIA
     Dosage: 50 MG, 1X/DAY, AT BEDTIME
     Dates: end: 20090611
  2. MOTRIN [Concomitant]
  3. CRESTOR [Concomitant]

REACTIONS (9)
  - ASTHENIA [None]
  - CHROMATURIA [None]
  - CONSTIPATION [None]
  - DIZZINESS [None]
  - DRY MOUTH [None]
  - MALAISE [None]
  - PALPITATIONS [None]
  - SOMNOLENCE [None]
  - TREMOR [None]
